FAERS Safety Report 4414592-X (Version None)
Quarter: 2004Q3

REPORT INFORMATION
  Report Type: 
  Country: None (occurrence: None)
  Receive Date: 20040729
  Receipt Date: 20040713
  Transmission Date: 20050211
  Serious: Yes (Hospitalization)
  Sender: FDA-Public Use
  Company Number: 2004-06677

PATIENT
  Age: 52 Year
  Sex: Male
  Weight: 60 kg

DRUGS (3)
  1. VIREAD [Suspect]
     Indication: HIV INFECTION
     Dosage: 300 MG, ONCE A DAY, ORAL
     Route: 048
     Dates: start: 20030827, end: 20031217
  2. EPIVIR [Concomitant]
  3. STOCRIN (EFAVIRENZ) [Concomitant]

REACTIONS (10)
  - BIOPSY KIDNEY ABNORMAL [None]
  - CONSTIPATION [None]
  - FIBROSIS [None]
  - GASTROENTERITIS [None]
  - INFLAMMATION [None]
  - RENAL FAILURE ACUTE [None]
  - RENAL IMPAIRMENT [None]
  - RENAL INTERSTITIAL FIBROSIS [None]
  - RENAL TUBULAR DISORDER [None]
  - WEIGHT DECREASED [None]
